FAERS Safety Report 15143929 (Version 1)
Quarter: 2018Q3

REPORT INFORMATION
  Report Type: Spontaneous
  Country: CN (occurrence: CN)
  Receive Date: 20180713
  Receipt Date: 20180713
  Transmission Date: 20181010
  Serious: Yes (Other)
  Sender: FDA-Public Use
  Company Number: CN-PFIZER INC-2018284730

PATIENT
  Age: 49 Year
  Sex: Male
  Weight: 60 kg

DRUGS (3)
  1. CAMPTO [Suspect]
     Active Substance: IRINOTECAN
     Indication: COLON CANCER
     Dosage: 280 MG, 1X/DAY
     Route: 041
     Dates: start: 20180201, end: 20180201
  2. BEVACIZUMAB. [Concomitant]
     Active Substance: BEVACIZUMAB
     Dosage: UNK
  3. CAMPTO [Suspect]
     Active Substance: IRINOTECAN
     Dosage: 280 MG, 1X/DAY
     Route: 041
     Dates: start: 20180219, end: 20180219

REACTIONS (3)
  - Neoplasm progression [Unknown]
  - Rash pruritic [Recovered/Resolved]
  - Rash [Recovered/Resolved]

NARRATIVE: CASE EVENT DATE: 2018
